FAERS Safety Report 7654298-7 (Version None)
Quarter: 2011Q3

REPORT INFORMATION
  Report Type: 
  Country: None (occurrence: None)
  Receive Date: 20110803
  Receipt Date: 20110721
  Transmission Date: 20111222
  Serious: Yes (Other)
  Sender: FDA-Public Use
  Company Number: PHHY2011AR23747

PATIENT
  Sex: Female

DRUGS (1)
  1. DIOVAN [Suspect]
     Indication: HYPERTENSION
     Dosage: 1 DF, 320 MG
     Dates: start: 20100401, end: 20100801

REACTIONS (4)
  - IRITIS [None]
  - VISUAL IMPAIRMENT [None]
  - UVEITIS [None]
  - VISUAL ACUITY REDUCED [None]
